FAERS Safety Report 6608369-4 (Version None)
Quarter: 2010Q1

REPORT INFORMATION
  Report Type: 
  Country: None (occurrence: None)
  Receive Date: 20100301
  Receipt Date: 20100217
  Transmission Date: 20100710
  Serious: Yes (Hospitalization, Other)
  Sender: FDA-Public Use
  Company Number: US-PFIZER INC-2009272797

PATIENT
  Sex: Male

DRUGS (8)
  1. SUTENT [Suspect]
     Indication: RENAL CELL CARCINOMA
     Dosage: 50 MG, 1X/DAY, X 28 DAYS Q 42 DAYS
     Dates: start: 20090901, end: 20091022
  2. MYCELEX [Concomitant]
  3. ATENOLOL [Concomitant]
     Dosage: 25 MG, 1X/DAY
  4. ZOLOFT [Concomitant]
     Dosage: 100 MG, 1X/DAY
  5. LOVASTATIN [Concomitant]
     Dosage: 40 MG, 1X/DAY
  6. PRILOSEC [Concomitant]
     Dosage: 20 MG, 1X/DAY
  7. LISINOPRIL [Concomitant]
     Dosage: 20 MG, 1X/DAY
  8. ATIVAN [Concomitant]
     Dosage: 0.5 MG, 2X/DAY

REACTIONS (8)
  - ASTHENIA [None]
  - BRAIN OEDEMA [None]
  - CONFUSIONAL STATE [None]
  - DEHYDRATION [None]
  - FALL [None]
  - FATIGUE [None]
  - LETHARGY [None]
  - TUMOUR HAEMORRHAGE [None]
